FAERS Safety Report 7658969-8 (Version None)
Quarter: 2011Q3

REPORT INFORMATION
  Report Type: 
  Country: None (occurrence: None)
  Receive Date: 20110805
  Receipt Date: 20110727
  Transmission Date: 20111222
  Serious: Yes (Other)
  Sender: FDA-Public Use
  Company Number: US-JNJFOC-20110800604

PATIENT
  Sex: Male
  Weight: 113.4 kg

DRUGS (1)
  1. REMICADE [Suspect]
     Indication: COLITIS ULCERATIVE
     Route: 042
     Dates: start: 20091101

REACTIONS (4)
  - ROTATOR CUFF SYNDROME [None]
  - INFUSION RELATED REACTION [None]
  - DYSPNOEA [None]
  - PROSTATIC SPECIFIC ANTIGEN INCREASED [None]
